FAERS Safety Report 18965270 (Version 2)
Quarter: 2021Q2

REPORT INFORMATION
  Report Type: Spontaneous
  Country: US (occurrence: US)
  Receive Date: 20210304
  Receipt Date: 20210405
  Transmission Date: 20210717
  Serious: No
  Sender: FDA-Public Use
  Company Number: US-AMGEN-USASP2021031393

PATIENT
  Age: 17 Year
  Sex: Male
  Weight: 55.7 kg

DRUGS (3)
  1. NPLATE [Suspect]
     Active Substance: ROMIPLOSTIM
     Indication: IMMUNE THROMBOCYTOPENIA
     Dosage: 3.5 MICROGRAM/KILOGRAM, QWK
     Route: 065
     Dates: start: 20201028
  2. NPLATE [Suspect]
     Active Substance: ROMIPLOSTIM
     Dosage: 4.5 MICROGRAM/KILOGRAM, QWK
     Route: 065
     Dates: start: 20201231
  3. NPLATE [Suspect]
     Active Substance: ROMIPLOSTIM
     Dosage: 550 MICROGRAM, QWK
     Route: 065
     Dates: start: 20210217

REACTIONS (2)
  - Therapy non-responder [Unknown]
  - Platelet count decreased [Not Recovered/Not Resolved]

NARRATIVE: CASE EVENT DATE: 2020
